FAERS Safety Report 7311128-0 (Version None)
Quarter: 2011Q1

REPORT INFORMATION
  Report Type: 
  Country: None (occurrence: None)
  Receive Date: 20110214
  Receipt Date: 20110124
  Transmission Date: 20110831
  Serious: Yes (Hospitalization)
  Sender: FDA-Public Use
  Company Number: APP201100081

PATIENT
  Age: 38 Year
  Sex: Female

DRUGS (4)
  1. METHYLPREDNISOLONE SODIUM SUCCINATE INJECTION, USP (METHYLPREDNISOLONE [Suspect]
     Indication: WEGENER'S GRANULOMATOSIS
     Dosage: DAILY, INTRAVENOUS
     Route: 042
  2. CYCLOPHOSPHAMIDE [Suspect]
  3. SULAMETHOXAZOLE/TRIMETHOPRIM [Suspect]
  4. PREDNISOLONE [Suspect]

REACTIONS (1)
  - BRONCHOPLEURAL FISTULA [None]
